FAERS Safety Report 18148810 (Version 2)
Quarter: 2020Q3

REPORT INFORMATION
  Report Type: Spontaneous
  Country: LU (occurrence: LU)
  Receive Date: 20200813
  Receipt Date: 20200825
  Transmission Date: 20201103
  Serious: No
  Sender: FDA-Public Use
  Company Number: LU-US-PROVELL PHARMACEUTICALS LLC-E2B_90079217

PATIENT
  Sex: Female

DRUGS (2)
  1. EUTHYROX [Suspect]
     Active Substance: LEVOTHYROXINE SODIUM
     Dosage: INCREASED DOSE IN JUL?2020
  2. EUTHYROX [Suspect]
     Active Substance: LEVOTHYROXINE SODIUM
     Indication: AUTOIMMUNE THYROIDITIS

REACTIONS (13)
  - Feeling abnormal [Unknown]
  - Dry skin [Not Recovered/Not Resolved]
  - Sleep disorder [Unknown]
  - Reaction to excipient [Unknown]
  - Skin wrinkling [Unknown]
  - Histamine intolerance [Unknown]
  - Palpitations [Recovered/Resolved]
  - Ocular hyperaemia [Not Recovered/Not Resolved]
  - Secretion discharge [Unknown]
  - Nasopharyngitis [Unknown]
  - Eye pruritus [Unknown]
  - Rash [Not Recovered/Not Resolved]
  - Intentional product use issue [Unknown]

NARRATIVE: CASE EVENT DATE: 202002
